FAERS Safety Report 22174957 (Version 1)
Quarter: 2023Q2

REPORT INFORMATION
  Report Type: Spontaneous
  Country: CN (occurrence: None)
  Receive Date: 20230405
  Receipt Date: 20230405
  Transmission Date: 20230722
  Serious: Yes (Other)
  Sender: FDA-Public Use
  Company Number: CN-ROCHE-3321625

PATIENT
  Age: 5 Month
  Sex: Female
  Weight: 6 kg

DRUGS (2)
  1. SIROLIMUS [Suspect]
     Active Substance: SIROLIMUS
     Indication: Hepatic cancer
     Route: 048
     Dates: start: 20230310, end: 20230315
  2. AVASTIN [Suspect]
     Active Substance: BEVACIZUMAB
     Indication: Hepatic cancer
     Dosage: PI=90MIN
     Route: 041
     Dates: start: 20230303, end: 20230303

REACTIONS (3)
  - Haemorrhage [Recovered/Resolved]
  - Platelet count decreased [Unknown]
  - Off label use [Unknown]

NARRATIVE: CASE EVENT DATE: 20230317
